FAERS Safety Report 9012096 (Version 3)
Quarter: 2013Q1

REPORT INFORMATION
  Report Type: Report from Study
  Country: BR (occurrence: BR)
  Receive Date: 20130114
  Receipt Date: 20130306
  Transmission Date: 20140127
  Serious: Yes (Hospitalization, Other)
  Sender: FDA-Public Use
  Company Number: BR-ROCHE-1178992

PATIENT
  Age: 35 Year
  Sex: Female
  Weight: 78 kg

DRUGS (5)
  1. MABTHERA [Suspect]
     Indication: SYSTEMIC LUPUS ERYTHEMATOSUS
     Route: 065
     Dates: start: 20120524
  2. PREDNISONE [Concomitant]
  3. LOSARTAN [Concomitant]
  4. HYDROXYCHLOROQUINE [Concomitant]
  5. SERTRALINE [Concomitant]

REACTIONS (3)
  - Thrombosis [Unknown]
  - Thrombosis [Unknown]
  - Cholelithiasis [Not Recovered/Not Resolved]
